FAERS Safety Report 22660942 (Version 1)
Quarter: 2023Q2

REPORT INFORMATION
  Report Type: Spontaneous
  Country: FR (occurrence: FR)
  Receive Date: 20230630
  Receipt Date: 20230630
  Transmission Date: 20230721
  Serious: Yes (Hospitalization)
  Sender: FDA-Public Use
  Company Number: FR-AFSSAPS-GR2023000487

PATIENT
  Age: 54 Year
  Sex: Female

DRUGS (2)
  1. ACETAMINOPHEN [Suspect]
     Active Substance: ACETAMINOPHEN
     Indication: Intentional overdose
     Dosage: 54 GRAM
     Route: 048
     Dates: start: 20230310, end: 20230310
  2. CODEINE [Suspect]
     Active Substance: CODEINE
     Indication: Intentional overdose
     Dosage: 2880 MILLIGRAM
     Route: 048
     Dates: start: 20230310, end: 20230310

REACTIONS (5)
  - Cholestasis [Recovering/Resolving]
  - Hepatic cytolysis [Recovering/Resolving]
  - Altered state of consciousness [Recovered/Resolved]
  - Poisoning deliberate [Recovered/Resolved]
  - Miosis [Recovered/Resolved]

NARRATIVE: CASE EVENT DATE: 20230310
